FAERS Safety Report 6102157-3 (Version None)
Quarter: 2009Q1

REPORT INFORMATION
  Report Type: 
  Country: None (occurrence: None)
  Receive Date: 20090303
  Receipt Date: 20090303
  Transmission Date: 20090719
  Serious: Yes (Other)
  Sender: FDA-Public Use
  Company Number: None

PATIENT
  Sex: Female

DRUGS (1)
  1. VANCOMYCIN HCL [Suspect]
     Dosage: 1GM IN 250ML NS
     Dates: start: 20081123, end: 20081123

REACTIONS (4)
  - FEELING HOT [None]
  - INFUSION RELATED REACTION [None]
  - PRURITUS [None]
  - RASH [None]
